FAERS Safety Report 24104202 (Version 1)
Quarter: 2024Q3

REPORT INFORMATION
  Report Type: Spontaneous
  Country: US (occurrence: US)
  Receive Date: 20240717
  Receipt Date: 20240717
  Transmission Date: 20241017
  Serious: Yes (Other)
  Sender: MSN LABORATORIES
  Company Number: US-MSNLABS-2024MSNSPO01508

PATIENT

DRUGS (4)
  1. CAPECITABINE [Suspect]
     Active Substance: CAPECITABINE
     Indication: Breast cancer stage IV
     Dosage: 500 MILLIGRAMS 3 TABLETS 2 TIMES A DAY
     Route: 065
  2. CAPECITABINE [Suspect]
     Active Substance: CAPECITABINE
     Dosage: 500 MILLIGRAMS 2 TABLETS A DAY
     Route: 065
  3. TUKYSA [Suspect]
     Active Substance: TUCATINIB
     Indication: Breast cancer stage IV
     Route: 065
  4. XELODA [Suspect]
     Active Substance: CAPECITABINE
     Indication: Breast cancer stage IV
     Route: 065

REACTIONS (20)
  - Chest injury [Unknown]
  - Skin discolouration [Recovering/Resolving]
  - Blood blister [Recovering/Resolving]
  - Red blood cell count decreased [Unknown]
  - Haematocrit decreased [Unknown]
  - Mean cell haemoglobin concentration decreased [Unknown]
  - Red cell distribution width increased [Unknown]
  - Monocyte percentage increased [Unknown]
  - Blood sodium decreased [Unknown]
  - Blood albumin decreased [Unknown]
  - Albumin globulin ratio decreased [Unknown]
  - Lymphocyte count decreased [Unknown]
  - Aspartate aminotransferase increased [Unknown]
  - Alanine aminotransferase increased [Unknown]
  - Platelet count decreased [Unknown]
  - Haemoglobin decreased [Unknown]
  - Erythema [Unknown]
  - Diarrhoea [Unknown]
  - Blood alkaline phosphatase increased [Unknown]
  - White blood cell count decreased [Unknown]
